FAERS Safety Report 15075948 (Version 1)
Quarter: 2018Q2

REPORT INFORMATION
  Report Type: Spontaneous
  Country: US (occurrence: US)
  Receive Date: 20180627
  Receipt Date: 20180627
  Transmission Date: 20180711
  Serious: Yes (Other)
  Sender: FDA-Public Use
  Company Number: US-SA-2018SA167200

PATIENT
  Age: 58 Year
  Sex: Female
  Weight: 101.15 kg

DRUGS (9)
  1. METFORMIN [Concomitant]
     Active Substance: METFORMIN HYDROCHLORIDE
  2. EPIRUBICIN [Concomitant]
     Active Substance: EPIRUBICIN
  3. TAXOTERE [Suspect]
     Active Substance: DOCETAXEL
     Indication: BREAST CANCER FEMALE
     Dosage: 2-4 WEEKS
     Route: 042
     Dates: start: 200804, end: 200804
  4. CYTOXAN [Concomitant]
     Active Substance: CYCLOPHOSPHAMIDE
  5. FUROSEMIDE. [Concomitant]
     Active Substance: FUROSEMIDE
  6. FLUOROURACIL 5 FU [Concomitant]
     Active Substance: FLUOROURACIL
  7. AMARYL [Concomitant]
     Active Substance: GLIMEPIRIDE
  8. TAXOTERE [Suspect]
     Active Substance: DOCETAXEL
     Dosage: 2-4 WEEKS
     Route: 042
     Dates: start: 20080513, end: 20080513
  9. NEOSAR [Concomitant]
     Active Substance: CYCLOPHOSPHAMIDE

REACTIONS (2)
  - Alopecia [Recovering/Resolving]
  - Psychological trauma [Unknown]

NARRATIVE: CASE EVENT DATE: 200811
